FAERS Safety Report 16760723 (Version 2)
Quarter: 2019Q3

REPORT INFORMATION
  Report Type: Spontaneous
  Country: RU (occurrence: RU)
  Receive Date: 20190830
  Receipt Date: 20190919
  Transmission Date: 20191005
  Serious: Yes (Death, Hospitalization)
  Sender: FDA-Public Use
  Company Number: RU-INCYTE CORPORATION-2019IN008612

PATIENT

DRUGS (1)
  1. JAKAVI [Suspect]
     Active Substance: RUXOLITINIB
     Indication: PRIMARY MYELOFIBROSIS
     Dosage: UNK UNK, BID
     Route: 048
     Dates: start: 20150925

REACTIONS (5)
  - Acute myeloid leukaemia [Fatal]
  - Anaemia [Fatal]
  - Neutropenia [Fatal]
  - Pneumonia [Fatal]
  - Thrombocytopenia [Fatal]

NARRATIVE: CASE EVENT DATE: 20190815
